FAERS Safety Report 7176969-1 (Version None)
Quarter: 2010Q4

REPORT INFORMATION
  Report Type: 
  Country: None (occurrence: None)
  Receive Date: 20101207
  Receipt Date: 20101124
  Transmission Date: 20110411
  Serious: Yes (Life-Threatening, Hospitalization)
  Sender: FDA-Public Use
  Company Number: DSA_44436_2010

PATIENT
  Age: 72 Year
  Sex: Female

DRUGS (3)
  1. ENALAPRIL MALEATE [Suspect]
     Indication: HYPERTENSION
     Dosage: (DF ORAL)
     Route: 048
     Dates: end: 20101105
  2. RASILEZ /01763601/ (RASILES ALISKIREN FUMARATE ) 150 MG (NOT SPECIFIED [Suspect]
     Indication: HYPERTENSION
     Dosage: (150-300 MG DAILY ORAL)
     Route: 048
     Dates: start: 20100929, end: 20101105
  3. HYDROCHLOROTHIAZIDE [Concomitant]

REACTIONS (4)
  - ARRHYTHMIA [None]
  - DRUG INTERACTION [None]
  - HYPERKALAEMIA [None]
  - RENAL FAILURE ACUTE [None]
